FAERS Safety Report 10996704 (Version 2)
Quarter: 2018Q4

REPORT INFORMATION
  Report Type: Spontaneous
  Country: FR (occurrence: FR)
  Receive Date: 20150408
  Receipt Date: 20181228
  Transmission Date: 20190204
  Serious: Yes (Hospitalization, Other)
  Sender: FDA-Public Use
  Company Number: FR-AUROBINDO-AUR-APL-2015-03038

PATIENT
  Age: 77 Year
  Sex: Male

DRUGS (5)
  1. EXELON [Suspect]
     Active Substance: RIVASTIGMINE TARTRATE
     Dosage: 4.6 MILLIGRAM
     Route: 062
     Dates: start: 20140610, end: 20141112
  2. ASPEGIC                            /00002703/ [Concomitant]
     Active Substance: ASPIRIN DL-LYSINE
     Indication: PRODUCT USED FOR UNKNOWN INDICATION
     Dosage: UNK
     Route: 065
  3. PAROXETINE ARROW 20 MG FILM-COATED TABLETS [Suspect]
     Active Substance: PAROXETINE
     Indication: PRODUCT USED FOR UNKNOWN INDICATION
     Dosage: 1 DOSAGE FORM, ONCE A DAY
     Route: 048
     Dates: end: 20141115
  4. EXELON [Suspect]
     Active Substance: RIVASTIGMINE TARTRATE
     Indication: PARKINSON^S DISEASE
     Dosage: 9.5 MILLIGRAM
     Route: 062
     Dates: end: 201405
  5. STALEVO [Suspect]
     Active Substance: CARBIDOPA\ENTACAPONE\LEVODOPA
     Indication: PRODUCT USED FOR UNKNOWN INDICATION
     Dosage: 3 DOSAGE FORM, ONCE A DAY (STRENGTH: 200 OT)
     Route: 048
     Dates: end: 20141112

REACTIONS (14)
  - Parkinsonism [Unknown]
  - Hyperreflexia [Unknown]
  - Abdominal pain [Unknown]
  - Aggression [Unknown]
  - Hallucination [Recovering/Resolving]
  - Fall [Unknown]
  - Non-24-hour sleep-wake disorder [Unknown]
  - Cognitive disorder [Unknown]
  - Facial bones fracture [Unknown]
  - Confusional state [Recovering/Resolving]
  - Condition aggravated [Unknown]
  - Irregular sleep wake rhythm disorder [Unknown]
  - Agitation [Unknown]
  - Drug intolerance [Unknown]

NARRATIVE: CASE EVENT DATE: 201405
